FAERS Safety Report 4463285-1 (Version None)
Quarter: 2004Q3

REPORT INFORMATION
  Report Type: 
  Country: None (occurrence: None)
  Receive Date: 20040930
  Receipt Date: 20040614
  Transmission Date: 20050211
  Serious: Yes (Other)
  Sender: FDA-Public Use
  Company Number: US-BRISTOL-MYERS SQUIBB COMPANY-12616116

PATIENT
  Age: 49 Year
  Sex: Male

DRUGS (5)
  1. ATAZANAVIR [Suspect]
     Indication: HIV INFECTION
  2. LAMIVUDINE + ZIDOVUDINE [Concomitant]
     Indication: HIV INFECTION
  3. DIDANOSINE [Concomitant]
     Indication: HIV INFECTION
  4. SAQUINAVIR [Concomitant]
     Indication: HIV INFECTION
  5. ATORVASTATIN CALCIUM [Concomitant]

REACTIONS (2)
  - ARTHRALGIA [None]
  - OEDEMA PERIPHERAL [None]
